FAERS Safety Report 20678871 (Version 1)
Quarter: 2022Q2

REPORT INFORMATION
  Report Type: Spontaneous
  Country: US (occurrence: None)
  Receive Date: 20220404
  Receipt Date: 20220404
  Transmission Date: 20220721
  Serious: Yes (Hospitalization)
  Sender: FDA-Public Use
  Company Number: None

PATIENT
  Age: 60 Year
  Sex: Female

DRUGS (1)
  1. CAPECITABINE [Suspect]
     Active Substance: CAPECITABINE
     Indication: Product used for unknown indication
     Dosage: FREQUENCY : TWICE A DAY;?
     Route: 048
     Dates: start: 202203

REACTIONS (9)
  - Treatment delayed [None]
  - Blood sodium decreased [None]
  - Conjunctivitis [None]
  - Anaemia [None]
  - Transfusion [None]
  - Thyroid hormones decreased [None]
  - Radiation interaction [None]
  - Drug interaction [None]
  - Drug level decreased [None]

NARRATIVE: CASE EVENT DATE: 20220401
